FAERS Safety Report 6280227-7 (Version None)
Quarter: 2009Q3

REPORT INFORMATION
  Report Type: 
  Country: None (occurrence: None)
  Receive Date: 20090723
  Receipt Date: 20090720
  Transmission Date: 20100115
  Serious: Yes (Other)
  Sender: FDA-Public Use
  Company Number: GB-MERCK-0907GBR00068

PATIENT
  Age: 77 Year
  Sex: Female

DRUGS (3)
  1. TRUSOPT [Suspect]
     Indication: INTRAOCULAR PRESSURE INCREASED
     Route: 047
     Dates: start: 20090601
  2. HAWTHORN [Concomitant]
     Indication: HYPERTENSION
     Route: 048
  3. TIMOLOL [Concomitant]
     Indication: GLAUCOMA
     Route: 047

REACTIONS (8)
  - BRONCHOSPASM [None]
  - CONDITION AGGRAVATED [None]
  - DRY MOUTH [None]
  - DYSGEUSIA [None]
  - DYSPEPSIA [None]
  - EYE PAIN [None]
  - PRURITUS [None]
  - THROAT IRRITATION [None]
